FAERS Safety Report 9551816 (Version 1)
Quarter: 2013Q3

REPORT INFORMATION
  Report Type: Spontaneous
  Country: US (occurrence: None)
  Receive Date: 20130724
  Receipt Date: 20130724
  Transmission Date: 20140515
  Serious: Yes (Other)
  Sender: FDA-Public Use
  Company Number: PHEH2012US013559

PATIENT
  Age: 60 Year
  Sex: Male
  Weight: 150 kg

DRUGS (11)
  1. GLEEVEC [Suspect]
     Route: 048
  2. MAGNESIUM (MAGNESIUM) [Concomitant]
  3. VITAMIN K (PHYTOMENADIONE) [Concomitant]
  4. CALCIUM (CALCIUM) [Concomitant]
  5. VITAMIN D (ERGOCALCIFEROL) [Concomitant]
  6. ALEVE (NAPROXEN SODIUM) [Concomitant]
  7. VITAMIN C [Concomitant]
  8. VITAMIN B12 (CYANOCOBALAMIN) [Concomitant]
  9. ULTRA MEGA G [Concomitant]
  10. WHEY PROTEIN POW [Concomitant]
  11. GLUCOSAMINE SULFATE W/CHONDROITIN (CHONDROITIN SULFATE, GLUCOSAMINE SULFATE) [Concomitant]

REACTIONS (1)
  - Chromosome analysis abnormal [None]
